FAERS Safety Report 4641216-9 (Version None)
Quarter: 2005Q2

REPORT INFORMATION
  Report Type: 
  Country: None (occurrence: None)
  Receive Date: 20050420
  Receipt Date: 20050420
  Transmission Date: 20051028
  Serious: Yes (Life-Threatening)
  Sender: FDA-Public Use
  Company Number: None

PATIENT
  Sex: Female

DRUGS (20)
  1. GAMMAGARD [Suspect]
     Indication: IMMUNODEFICIENCY
  2. GAMMAGARD [Suspect]
  3. GAMMAGARD [Suspect]
  4. GAMMAGARD [Suspect]
  5. GAMMAGARD [Suspect]
  6. GAMMAGARD [Suspect]
  7. GAMMAGARD [Suspect]
  8. GAMMAGARD [Suspect]
  9. GAMMAGARD [Suspect]
  10. GAMMAGARD [Suspect]
  11. GAMMAGARD [Suspect]
  12. GAMMAGARD [Suspect]
  13. GAMMAGARD [Suspect]
  14. GAMMAGARD [Suspect]
  15. GAMMAGARD [Suspect]
  16. POLYGAM [Suspect]
  17. POLYGAM [Suspect]
  18. IMMUNE GLOBULIN (HUMAN) [Suspect]
  19. SANDOGLOBULIN [Suspect]
  20. SANDOGLOBULIN [Suspect]

REACTIONS (1)
  - CREUTZFELDT-JAKOB DISEASE [None]
